FAERS Safety Report 11051445 (Version 2)
Quarter: 2015Q2

REPORT INFORMATION
  Report Type: Spontaneous
  Country: ES (occurrence: ES)
  Receive Date: 20150421
  Receipt Date: 20150529
  Transmission Date: 20150821
  Serious: Yes (Other)
  Sender: FDA-Public Use
  Company Number: ES-BRACCO-001141

PATIENT
  Age: 77 Year
  Sex: Female

DRUGS (7)
  1. PROTELOS [Concomitant]
     Active Substance: STRONTIUM RANELATE
     Route: 048
  2. CLOPIDOGREL [Concomitant]
     Active Substance: CLOPIDOGREL BISULFATE
     Dates: start: 20141028
  3. ADIRO [Concomitant]
     Active Substance: ASPIRIN
     Route: 048
     Dates: start: 20141028
  4. APOCARD [Concomitant]
     Active Substance: FLECAINIDE ACETATE
     Indication: ATRIAL FIBRILLATION
     Route: 048
  5. IOPAMIRO [Suspect]
     Active Substance: IOPAMIDOL
     Indication: ANEURYSM REPAIR
     Route: 013
     Dates: start: 20141106, end: 20141106
  6. BENICAR [Concomitant]
     Active Substance: OLMESARTAN MEDOXOMIL
     Indication: HYPERTENSION
     Route: 048
  7. INDAPAMIDA [Concomitant]
     Active Substance: INDAPAMIDE
     Indication: HYPERTENSION
     Route: 048

REACTIONS (2)
  - Aphasia [Recovered/Resolved]
  - Hemiplegia [Recovered/Resolved]

NARRATIVE: CASE EVENT DATE: 20141106
